FAERS Safety Report 13403357 (Version 1)
Quarter: 2017Q2

REPORT INFORMATION
  Report Type: Spontaneous
  Country: US (occurrence: US)
  Receive Date: 20170404
  Receipt Date: 20170404
  Transmission Date: 20170830
  Serious: No
  Sender: FDA-Public Use
  Company Number: None

PATIENT
  Sex: Female

DRUGS (3)
  1. SINGULAIR [Concomitant]
     Active Substance: MONTELUKAST SODIUM
  2. AVONEX [Suspect]
     Active Substance: INTERFERON BETA-1A
     Indication: MULTIPLE SCLEROSIS
     Dosage: ?          OTHER FREQUENCY:EVERY WEEK;?
     Route: 030
     Dates: start: 20140124
  3. ALBUTEROL. [Concomitant]
     Active Substance: ALBUTEROL

REACTIONS (1)
  - Headache [None]
